FAERS Safety Report 16189877 (Version 1)
Quarter: 2019Q2

REPORT INFORMATION
  Report Type: Spontaneous
  Country: CN (occurrence: CN)
  Receive Date: 20190412
  Receipt Date: 20190412
  Transmission Date: 20190711
  Serious: Yes (Hospitalization)
  Sender: FDA-Public Use
  Company Number: CN-PFIZER INC-2019153708

PATIENT
  Age: 80 Year
  Sex: Female
  Weight: 50 kg

DRUGS (4)
  1. SULPERAZON [Suspect]
     Active Substance: CEFOPERAZONE SODIUM\SULBACTAM SODIUM
     Indication: PNEUMONIA
     Dosage: 3 G, 3X/DAY
     Route: 041
     Dates: start: 20190203, end: 20190215
  2. NORVANCOMYCIN HYDROCHLORIDE [Suspect]
     Active Substance: NORVANCOMYCIN HYDROCHLORIDE
     Indication: PNEUMONIA
     Dosage: 0.8 G, 2X/DAY
     Route: 041
     Dates: start: 20190225, end: 20190304
  3. TYGACIL [Suspect]
     Active Substance: TIGECYCLINE
     Indication: PNEUMONIA
     Dosage: 50 MG, 2X/DAY
     Route: 041
     Dates: start: 20190215, end: 20190312
  4. SULPERAZON [Suspect]
     Active Substance: CEFOPERAZONE SODIUM\SULBACTAM SODIUM
     Dosage: 3 G, 3X/DAY
     Route: 041
     Dates: start: 20190305, end: 20190312

REACTIONS (3)
  - Diarrhoea [Recovering/Resolving]
  - Faeces discoloured [Recovering/Resolving]
  - Anal incontinence [Recovering/Resolving]

NARRATIVE: CASE EVENT DATE: 20190306
